FAERS Safety Report 6341128-9 (Version None)
Quarter: 2009Q3

REPORT INFORMATION
  Report Type: 
  Country: None (occurrence: None)
  Receive Date: 20090904
  Receipt Date: 20090123
  Transmission Date: 20100115
  Serious: No
  Sender: FDA-Public Use
  Company Number: A0765079A

PATIENT
  Age: 61 Year
  Sex: Female

DRUGS (6)
  1. REQUIP [Suspect]
     Indication: RESTLESS LEGS SYNDROME
     Dosage: 2MG AT NIGHT
     Route: 048
  2. LIPITOR [Concomitant]
  3. ZIAC [Concomitant]
  4. RAMIPRIL [Concomitant]
  5. PRILOSEC [Concomitant]
  6. VITAMINS [Concomitant]

REACTIONS (2)
  - NAUSEA [None]
  - VOMITING [None]
